FAERS Safety Report 12009976 (Version 2)
Quarter: 2017Q1

REPORT INFORMATION
  Report Type: Spontaneous
  Country: ES (occurrence: ES)
  Receive Date: 20160205
  Receipt Date: 20170322
  Transmission Date: 20170428
  Serious: Yes (Other)
  Sender: FDA-Public Use
  Company Number: ES-CIPLA LTD.-2016ES00705

PATIENT

DRUGS (9)
  1. BOSENTAN. [Suspect]
     Active Substance: BOSENTAN
     Dosage: 125 MG/DAY, UNK
     Route: 065
  2. TELAPREVIR [Suspect]
     Active Substance: TELAPREVIR
     Indication: HEPATITIS C
     Dosage: UNK
     Route: 065
     Dates: start: 201205
  3. RIBAVIRIN. [Suspect]
     Active Substance: RIBAVIRIN
     Indication: HEPATITIS C
     Dosage: UNK
     Route: 065
     Dates: start: 201205
  4. AMLODIPINE [Suspect]
     Active Substance: AMLODIPINE BESYLATE
     Dosage: UNK
     Route: 065
  5. ALPROSTADIL. [Suspect]
     Active Substance: ALPROSTADIL
     Indication: NECROSIS
     Dosage: 60 MCG FOR 21 DAYS, UNK
     Route: 042
  6. CYCLOPHOSPHAMIDE. [Suspect]
     Active Substance: CYCLOPHOSPHAMIDE
     Indication: MARGINAL ZONE LYMPHOMA
     Dosage: 750 MG/M2, EVERY 15 DAYS FOR 3 DOSES
     Route: 065
  7. BOSENTAN. [Suspect]
     Active Substance: BOSENTAN
     Indication: ULCER
     Dosage: 62.5 MG, BID
     Route: 065
  8. INTERFERON [Suspect]
     Active Substance: INTERFERON
     Indication: HEPATITIS C
     Dosage: UNK
     Route: 065
     Dates: start: 201205
  9. RITUXIMAB [Suspect]
     Active Substance: RITUXIMAB
     Indication: MARGINAL ZONE LYMPHOMA
     Dosage: 375 MG/M2 ONCE WEEKLY FOR 4 CYCLES
     Route: 065

REACTIONS (5)
  - Necrosis [Unknown]
  - Skin ulcer [Recovered/Resolved]
  - Drug ineffective [Unknown]
  - Off label use [Unknown]
  - Marginal zone lymphoma [Unknown]
